FAERS Safety Report 5757346-4 (Version None)
Quarter: 2008Q2

REPORT INFORMATION
  Report Type: 
  Country: None (occurrence: None)
  Receive Date: 20080529
  Receipt Date: 20080516
  Transmission Date: 20081010
  Serious: Yes (Hospitalization)
  Sender: FDA-Public Use
  Company Number: 234610J08USA

PATIENT
  Age: 53 Year
  Sex: Male

DRUGS (4)
  1. REBIF [Suspect]
     Indication: MULTIPLE SCLEROSIS
     Dosage: 44 MCG, 3 IN 1 WEEKS, SUBCUTANEOUS
     Route: 057
     Dates: start: 20041215
  2. IBUPROFEN [Concomitant]
  3. ALEVE (CAPLET) [Concomitant]
  4. EXCEDRIN (MIGRAINE) [Concomitant]

REACTIONS (2)
  - MOVEMENT DISORDER [None]
  - MUSCULAR WEAKNESS [None]
